FAERS Safety Report 5061219-2 (Version None)
Quarter: 2006Q3

REPORT INFORMATION
  Report Type: 
  Country: None (occurrence: None)
  Receive Date: 20060725
  Receipt Date: 20060713
  Transmission Date: 20061208
  Serious: Yes (Other)
  Sender: FDA-Public Use
  Company Number: ZA-ROCHE-455486

PATIENT
  Age: 58 Year
  Sex: Female
  Weight: 66 kg

DRUGS (1)
  1. XELODA [Suspect]
     Indication: BREAST CANCER
     Dosage: 2G IN THE MORNING, 1.5G AT NIGHT
     Route: 048
     Dates: start: 20060621, end: 20060703

REACTIONS (1)
  - STEVENS-JOHNSON SYNDROME [None]
